FAERS Safety Report 7739894-0 (Version None)
Quarter: 2011Q3

REPORT INFORMATION
  Report Type: 
  Country: None (occurrence: None)
  Receive Date: 20110909
  Receipt Date: 20110906
  Transmission Date: 20111222
  Serious: Yes (Death, Hospitalization)
  Sender: FDA-Public Use
  Company Number: PHEH2011US03488

PATIENT
  Sex: Female

DRUGS (17)
  1. AMLODIPINE [Concomitant]
     Dosage: 10 MG,
     Route: 065
  2. PLAQUENIL [Concomitant]
     Dosage: 200 MG,
     Route: 065
  3. ANTI-PARKINSON DRUGS [Concomitant]
     Dosage: UNK UKN, UNK
     Route: 065
  4. PRAMIPEXOLE [Concomitant]
     Dosage: 0.5 MG,
     Route: 065
  5. NEXIUM [Concomitant]
     Dosage: 20 MG,
     Route: 065
  6. ASPIRIN ADLT [Concomitant]
     Dosage: 81 MG,
     Route: 065
  7. EXJADE [Suspect]
     Dosage: 250 MG, TID
     Route: 048
  8. SINEMET CR [Concomitant]
     Dosage: 25-100 MG
     Route: 065
  9. ANTIHYPERTENSIVE DRUGS [Concomitant]
     Dosage: UNK UKN, UNK
     Route: 065
  10. PREDNISOLONE [Concomitant]
     Dosage: 1 MG, UNK
     Route: 065
  11. CYMBALTA [Concomitant]
     Dosage: 20 MG,
     Route: 065
  12. METOPROLOL TARTRATE [Concomitant]
     Dosage: 100 MG,
     Route: 065
  13. LEFLUNOMIDE [Concomitant]
     Dosage: 10 MG,
     Route: 065
  14. BENADRYL [Concomitant]
     Dosage: 25 MG,
     Route: 065
  15. FEMHRT [Concomitant]
     Dosage: 0.5-2.5 MG
     Route: 065
  16. ZOCOR [Concomitant]
     Dosage: 10 MG, UNK
     Route: 065
  17. LASIX [Concomitant]
     Dosage: 20 MG,
     Route: 065

REACTIONS (2)
  - DEATH [None]
  - CONVULSION [None]
